FAERS Safety Report 8144157-8 (Version None)
Quarter: 2012Q1

REPORT INFORMATION
  Report Type: 
  Country: None (occurrence: None)
  Receive Date: 20120217
  Receipt Date: 20120214
  Transmission Date: 20120608
  Serious: Yes (Other)
  Sender: FDA-Public Use
  Company Number: US-PFIZER INC-2012009375

PATIENT
  Sex: Female
  Weight: 58.05 kg

DRUGS (5)
  1. IRON [Concomitant]
     Indication: BLOOD IRON DECREASED
     Dosage: UNK, DAILY
  2. LYRICA [Suspect]
     Indication: CONVULSION
     Dosage: 100 MG FIVE TIMES A DAY
  3. LACTIC ACID BACILLUS PROBIOTIC [Concomitant]
     Indication: PROBIOTIC THERAPY
     Dosage: 1 PILL DAILY
  4. KEPPRA [Suspect]
     Indication: CONVULSION
     Dosage: UNK
  5. PHENOBARBITAL TAB [Suspect]
     Indication: CONVULSION
     Dosage: 260 MG DAILY
     Dates: start: 19970101

REACTIONS (2)
  - DRUG INEFFECTIVE [None]
  - CONVULSION [None]
